FAERS Safety Report 19640614 (Version 1)
Quarter: 2021Q3

REPORT INFORMATION
  Report Type: Spontaneous
  Country: US (occurrence: US)
  Receive Date: 20210730
  Receipt Date: 20210730
  Transmission Date: 20211014
  Serious: Yes (Hospitalization)
  Sender: FDA-Public Use
  Company Number: US-TEVA-2021-US-1936166

PATIENT
  Sex: Female

DRUGS (4)
  1. GABAPENTIN. [Suspect]
     Active Substance: GABAPENTIN
     Indication: NEUROPATHY PERIPHERAL
     Dosage: 11 YEARS NOW
     Route: 065
  2. LYRICA [Suspect]
     Active Substance: PREGABALIN
     Route: 065
  3. NEXIUM [Suspect]
     Active Substance: ESOMEPRAZOLE MAGNESIUM
     Route: 065
  4. GABAPENTIN. [Suspect]
     Active Substance: GABAPENTIN
     Dosage: 4 CAPSULES PER DAY
     Route: 065

REACTIONS (10)
  - Product formulation issue [Unknown]
  - Feeling abnormal [Unknown]
  - Wrong technique in product usage process [Unknown]
  - Oral discomfort [Unknown]
  - Illness [Unknown]
  - Nausea [Unknown]
  - Drug ineffective [Unknown]
  - Oesophageal pain [Unknown]
  - Dysgeusia [Unknown]
  - Drug intolerance [Unknown]
